FAERS Safety Report 4577848-6 (Version None)
Quarter: 2005Q1

REPORT INFORMATION
  Report Type: 
  Country: None (occurrence: None)
  Receive Date: 20050209
  Receipt Date: 20050126
  Transmission Date: 20050727
  Serious: Yes (Hospitalization)
  Sender: FDA-Public Use
  Company Number: 2005JP000196

PATIENT
  Age: 25 Year
  Sex: Male

DRUGS (2)
  1. PROGRAF [Suspect]
     Indication: RENAL TRANSPLANT
  2. MIZORIBINE [Concomitant]

REACTIONS (5)
  - ADENOVIRUS INFECTION [None]
  - BK VIRUS INFECTION [None]
  - COMPLICATIONS OF TRANSPLANTED KIDNEY [None]
  - PYELONEPHRITIS [None]
  - VIRAL HAEMORRHAGIC CYSTITIS [None]
